FAERS Safety Report 5274381-3 (Version None)
Quarter: 2007Q1

REPORT INFORMATION
  Report Type: 
  Country: None (occurrence: None)
  Receive Date: 20070323
  Receipt Date: 20070313
  Transmission Date: 20070707
  Serious: Yes (Other)
  Sender: FDA-Public Use
  Company Number: FR-PFIZER INC-2006155948

PATIENT
  Sex: Female
  Weight: 80 kg

DRUGS (8)
  1. LYRICA [Suspect]
     Indication: NEURALGIA
  2. LYRICA [Suspect]
     Indication: PAIN
  3. EFFEXOR [Concomitant]
  4. TRAMADOL HCL [Concomitant]
  5. ADVIL [Concomitant]
     Route: 048
  6. MINIDRIL [Concomitant]
  7. XANAX [Concomitant]
     Route: 048
  8. SKENAN [Concomitant]
     Route: 048
     Dates: end: 20060901

REACTIONS (2)
  - HAEMATOMA [None]
  - VERTIGO [None]
